FAERS Safety Report 8574523-8 (Version None)
Quarter: 2012Q3

REPORT INFORMATION
  Report Type: 
  Country: None (occurrence: None)
  Receive Date: 20120806
  Receipt Date: 20120730
  Transmission Date: 20120928
  Serious: Yes (Other)
  Sender: FDA-Public Use
  Company Number: US-ABBOTT-12P-163-0891076-00

PATIENT
  Sex: Male
  Weight: 76.272 kg

DRUGS (8)
  1. CHEMOTHERAPEUTICS [Suspect]
     Route: 050
  2. NORVASC [Concomitant]
     Indication: HYPERTENSION
     Route: 048
  3. VITAMIN B COMPLEX CAP [Concomitant]
     Indication: VITAMIN SUPPLEMENTATION
  4. SINGULAIR [Concomitant]
     Indication: RESPIRATORY DISORDER
  5. PROAIR HFA [Concomitant]
     Indication: RESPIRATORY DISORDER
     Dosage: TWICE DAILY
     Route: 055
  6. SINGULAIR [Concomitant]
     Indication: SINUS CONGESTION
     Dosage: AT BEDTIME
  7. MULTIPLE VITAMINS [Concomitant]
     Indication: VITAMIN SUPPLEMENTATION
  8. HUMIRA [Suspect]
     Indication: RHEUMATOID ARTHRITIS
     Route: 058
     Dates: start: 20090101

REACTIONS (10)
  - FATIGUE [None]
  - BRAIN NEOPLASM [None]
  - VIITH NERVE PARALYSIS [None]
  - SPEECH DISORDER [None]
  - PROSTATE CANCER [None]
  - HYPOAESTHESIA [None]
  - TONGUE DISORDER [None]
  - LYMPHADENOPATHY [None]
  - MUSCULOSKELETAL STIFFNESS [None]
  - OEDEMA PERIPHERAL [None]
